FAERS Safety Report 19905227 (Version 2)
Quarter: 2021Q4

REPORT INFORMATION
  Report Type: Spontaneous
  Country: BR (occurrence: BR)
  Receive Date: 20211001
  Receipt Date: 20211001
  Transmission Date: 20220303
  Serious: Yes (Death)
  Sender: FDA-Public Use
  Company Number: BR-CELGENE-BRA-20210907866

PATIENT
  Age: 62 Year
  Sex: Male
  Weight: 75 kg

DRUGS (1)
  1. VIDAZA [Suspect]
     Active Substance: AZACITIDINE
     Indication: Myelodysplastic syndrome
     Route: 058
     Dates: start: 201912, end: 20191223

REACTIONS (3)
  - Myelodysplastic syndrome [Fatal]
  - Myocardial infarction [Fatal]
  - Weight decreased [Unknown]

NARRATIVE: CASE EVENT DATE: 20190101
